FAERS Safety Report 6400701-X (Version None)
Quarter: 2009Q4

REPORT INFORMATION
  Report Type: 
  Country: None (occurrence: None)
  Receive Date: 20091014
  Receipt Date: 20091002
  Transmission Date: 20100525
  Serious: Yes (Hospitalization)
  Sender: FDA-Public Use
  Company Number: CA-ELI_LILLY_AND_COMPANY-CA200910000930

PATIENT
  Age: 87 Year
  Sex: Female

DRUGS (15)
  1. FORTEO [Suspect]
     Indication: OSTEOPOROSIS
     Dosage: 20 UG, DAILY (1/D)
     Route: 058
     Dates: start: 20080606
  2. VITAMIN D [Concomitant]
  3. PREDNISONE TAB [Concomitant]
  4. RAMIPRIL [Concomitant]
  5. ACEBUTOLOL [Concomitant]
  6. PANTOLOC /01263201/ [Concomitant]
  7. APO-HYDROCHLOROTHIAZIDE [Concomitant]
  8. APO-FERROUS GLUCONATE [Concomitant]
  9. CRESTOR [Concomitant]
  10. NOVO-SPIROTON [Concomitant]
  11. ASPIRIN [Concomitant]
  12. POTASSIUM CHLORIDE [Concomitant]
  13. DETROL [Concomitant]
  14. VITAMIN B-12 [Concomitant]
  15. ZOPICLONE [Concomitant]

REACTIONS (2)
  - CARDIAC FAILURE CONGESTIVE [None]
  - DYSPNOEA [None]
